FAERS Safety Report 10361123 (Version 2)
Quarter: 2014Q3

REPORT INFORMATION
  Report Type: Spontaneous
  Country: US (occurrence: US)
  Receive Date: 20140804
  Receipt Date: 20140804
  Transmission Date: 20150326
  Serious: Yes (Hospitalization, Other)
  Sender: FDA-Public Use
  Company Number: US-009507513-2010SP005479

PATIENT
  Sex: Female
  Weight: 104.33 kg

DRUGS (3)
  1. NUVARING [Suspect]
     Active Substance: ETHINYL ESTRADIOL\ETONOGESTREL
     Indication: CONTRACEPTION
     Dosage: UNK UNK, QM
     Route: 067
     Dates: start: 2006, end: 2006
  2. VICKS DAYQUIL (ACETAMINOPHEN (+) DEXTROMETHORPHAN HYDROBROMIDE (+) GUA [Suspect]
     Active Substance: ACETAMINOPHEN\DEXTROMETHORPHAN HYDROBROMIDE\GUAIFENESIN
     Indication: PRODUCT USED FOR UNKNOWN INDICATION
  3. NUVARING [Suspect]
     Active Substance: ETHINYL ESTRADIOL\ETONOGESTREL
     Route: 067
     Dates: start: 20070407

REACTIONS (25)
  - Suicide attempt [Unknown]
  - Pulmonary embolism [Unknown]
  - Endometritis [Recovering/Resolving]
  - Alcoholism [None]
  - Incorrect dose administered [None]
  - Drug abuse [None]
  - Alcohol abuse [None]
  - Hypertension [None]
  - Anxiety [None]
  - Depression [None]
  - Middle insomnia [None]
  - International normalised ratio decreased [None]
  - Treatment noncompliance [None]
  - Binge drinking [None]
  - Alcohol poisoning [None]
  - Thrombosis [Unknown]
  - Pulmonary infarction [Unknown]
  - Deep vein thrombosis [None]
  - Prothrombin time shortened [None]
  - Drug dependence [None]
  - Procedural pain [None]
  - Hepatitis C [Unknown]
  - Intentional overdose [None]
  - Pain [None]
  - Partner stress [None]

NARRATIVE: CASE EVENT DATE: 200604
